FAERS Safety Report 18106524 (Version 2)
Quarter: 2020Q3

REPORT INFORMATION
  Report Type: Spontaneous
  Country: US (occurrence: US)
  Receive Date: 20200804
  Receipt Date: 20200806
  Transmission Date: 20201103
  Serious: No
  Sender: FDA-Public Use
  Company Number: US-SHIRE-US202024670

PATIENT
  Sex: Female

DRUGS (2)
  1. C1?INHIBITOR, PLASMA DERIVED [Concomitant]
     Indication: HEREDITARY ANGIOEDEMA
  2. TAKHZYRO [Suspect]
     Active Substance: LANADELUMAB-FLYO
     Indication: HEREDITARY ANGIOEDEMA
     Dosage: UNK UNK, 1X/2WKS
     Route: 050

REACTIONS (1)
  - Injection site reaction [Unknown]
